FAERS Safety Report 9139036 (Version 1)
Quarter: 2013Q1

REPORT INFORMATION
  Report Type: Spontaneous
  Country: DE (occurrence: DE)
  Receive Date: 20130305
  Receipt Date: 20130305
  Transmission Date: 20140127
  Serious: Yes (Hospitalization)
  Sender: FDA-Public Use
  Company Number: DE-ELI_LILLY_AND_COMPANY-DE201302007392

PATIENT
  Age: 35 Year
  Sex: Male

DRUGS (6)
  1. ZYPADHERA [Suspect]
     Indication: SCHIZOPHRENIA
     Dosage: 405 MG, MONTHLY (1/M)
     Route: 030
     Dates: start: 201201
  2. ZYPADHERA [Suspect]
     Dosage: 300 MG, MONTHLY (1/M)
  3. OLANZAPINE [Suspect]
     Dosage: 10 MG, EACH EVENING
  4. QUILONUM - SLOW RELEASE [Concomitant]
     Dosage: UNK UNK, BID
  5. BELOC-ZOK [Concomitant]
     Dosage: UNK UNK, QD
  6. PERAZIN                            /00162503/ [Concomitant]
     Dosage: 200 MG, UNKNOWN

REACTIONS (7)
  - Speech disorder [Recovered/Resolved]
  - Orthostatic intolerance [Recovered/Resolved]
  - Dizziness [Recovered/Resolved]
  - Fatigue [Recovered/Resolved]
  - Gait disturbance [Recovered/Resolved]
  - Chills [Recovered/Resolved]
  - Confusional state [Recovered/Resolved]
